FAERS Safety Report 6935089-9 (Version None)
Quarter: 2010Q3

REPORT INFORMATION
  Report Type: 
  Country: None (occurrence: None)
  Receive Date: 20100822
  Receipt Date: 20100812
  Transmission Date: 20110219
  Serious: Yes (Hospitalization, Other)
  Sender: FDA-Public Use
  Company Number: PHHY2010JP46143

PATIENT
  Sex: Male

DRUGS (2)
  1. FAMVIR [Suspect]
     Indication: HERPES ZOSTER
     Dosage: 500 MG, TID
     Route: 048
     Dates: start: 20100706, end: 20100709
  2. VIDARABINE [Concomitant]
     Dosage: UNK
     Dates: start: 20100706, end: 20100709

REACTIONS (7)
  - ABNORMAL BEHAVIOUR [None]
  - BLOOD CREATININE DECREASED [None]
  - DISORIENTATION [None]
  - DIZZINESS [None]
  - GAIT DISTURBANCE [None]
  - HEADACHE [None]
  - URINARY INCONTINENCE [None]
